FAERS Safety Report 19386488 (Version 1)
Quarter: 2021Q2

REPORT INFORMATION
  Report Type: Spontaneous
  Country: US (occurrence: US)
  Receive Date: 20210604
  Receipt Date: 20210604
  Transmission Date: 20210717
  Serious: Yes (Other)
  Sender: FDA-Public Use
  Company Number: None

PATIENT
  Sex: Female
  Weight: 66.15 kg

DRUGS (1)
  1. LIPODISSOLVE [Suspect]
     Active Substance: UNSPECIFIED INGREDIENT
     Dates: start: 20210210

REACTIONS (2)
  - Injection site abscess [None]
  - Mycobacterial infection [None]
